FAERS Safety Report 7071504-0 (Version None)
Quarter: 2010Q4

REPORT INFORMATION
  Report Type: 
  Country: None (occurrence: None)
  Receive Date: 20101029
  Receipt Date: 20091016
  Transmission Date: 20110411
  Serious: No
  Sender: FDA-Public Use
  Company Number: A0807247A

PATIENT
  Age: 68 Year
  Sex: Male

DRUGS (9)
  1. ADVAIR DISKUS 100/50 [Suspect]
     Indication: ASTHMA
     Dosage: 1PUFF TWICE PER DAY
     Route: 055
     Dates: start: 20010101
  2. SPIRIVA [Concomitant]
  3. SINGULAIR [Concomitant]
  4. LISINOPRIL [Concomitant]
  5. AVODART [Concomitant]
  6. CHLORTHALIDONE [Concomitant]
  7. PRAVASTATIN [Concomitant]
  8. AMLODIPINE [Concomitant]
  9. PLAVIX [Concomitant]

REACTIONS (2)
  - PRODUCT QUALITY ISSUE [None]
  - SECRETION DISCHARGE [None]
